FAERS Safety Report 5353648-4 (Version None)
Quarter: 2007Q2

REPORT INFORMATION
  Report Type: 
  Country: None (occurrence: None)
  Receive Date: 20070612
  Receipt Date: 20070601
  Transmission Date: 20071010
  Serious: Yes (Other)
  Sender: FDA-Public Use
  Company Number: TW-AVENTIS-200715059GDDC

PATIENT
  Age: 60 Year
  Sex: Female

DRUGS (5)
  1. METHOTREXATE [Suspect]
     Dosage: DOSE: 12 MG
     Route: 037
     Dates: start: 20040901
  2. METHOTREXATE [Suspect]
     Dosage: DOSE: 1 G/M2 SYTEMICALLY
  3. HYDROCORTISONE [Suspect]
     Route: 037
     Dates: start: 20040901
  4. CYTARABINE [Concomitant]
     Dosage: DOSE: 30 MG
     Dates: start: 20040901
  5. CYTARABINE [Concomitant]
     Dosage: DOSE: 6 G/M2

REACTIONS (1)
  - MYELOPATHY [None]
